FAERS Safety Report 10220864 (Version 2)
Quarter: 2014Q2

REPORT INFORMATION
  Report Type: Spontaneous
  Country: JP (occurrence: JP)
  Receive Date: 20140606
  Receipt Date: 20140619
  Transmission Date: 20141212
  Serious: Yes (Hospitalization)
  Sender: FDA-Public Use
  Company Number: JP-JNJFOC-20140518623

PATIENT
  Age: 75 Year
  Sex: Male
  Weight: 58 kg

DRUGS (6)
  1. XARELTO [Suspect]
     Indication: CEREBROVASCULAR ACCIDENT PROPHYLAXIS
     Route: 048
     Dates: start: 20131016, end: 20140527
  2. XARELTO [Suspect]
     Indication: ATRIAL FIBRILLATION
     Route: 048
     Dates: start: 20131016, end: 20140527
  3. SIMVASTATIN [Concomitant]
     Indication: DYSLIPIDAEMIA
     Route: 048
  4. BLOPRESS [Concomitant]
     Indication: HYPERTENSION
     Route: 048
  5. ALOSITOL [Concomitant]
     Indication: HYPERURICAEMIA
     Route: 049
  6. URALYT [Concomitant]
     Indication: HYPERURICAEMIA
     Route: 048

REACTIONS (2)
  - Pulmonary alveolar haemorrhage [Not Recovered/Not Resolved]
  - Interstitial lung disease [Not Recovered/Not Resolved]
